FAERS Safety Report 5176387-1 (Version None)
Quarter: 2006Q4

REPORT INFORMATION
  Report Type: 
  Country: None (occurrence: None)
  Receive Date: 20061215
  Receipt Date: 20061023
  Transmission Date: 20070319
  Serious: Yes (Other)
  Sender: FDA-Public Use
  Company Number: JP-ROCHE-468039

PATIENT
  Age: 83 Year
  Sex: Female

DRUGS (13)
  1. CERCINE [Suspect]
     Indication: SEDATION
     Route: 048
     Dates: start: 20030912
  2. ANEXATE TAB [Suspect]
     Route: 042
     Dates: start: 20061016, end: 20061016
  3. SALINE [Concomitant]
     Dosage: DRIP; ADMIXTURE WITH MIDAZOLAM
     Route: 042
     Dates: start: 20061016, end: 20061016
  4. SCOPOLAMINE [Concomitant]
     Indication: PREMEDICATION
     Dosage: SPORAMIN
     Dates: start: 20061016, end: 20061016
  5. ALOSENN [Concomitant]
     Indication: CONSTIPATION
     Route: 048
     Dates: start: 20030530
  6. MAGLAX [Concomitant]
     Indication: CONSTIPATION
     Route: 048
     Dates: start: 20050905
  7. FERROMIA [Concomitant]
     Indication: IRON DEFICIENCY ANAEMIA
     Route: 048
     Dates: start: 20060606
  8. SIGMART [Concomitant]
     Indication: HYPERTENSION
     Route: 048
     Dates: start: 20030530
  9. MILTEX [Concomitant]
     Dosage: AS NEEDED. MILTAX
     Route: 061
     Dates: start: 20040501
  10. KETOPROFEN [Concomitant]
     Dosage: AS NEEDED.
     Route: 061
     Dates: start: 20040501
  11. SOLITA [Concomitant]
     Dosage: FOR MAINTENANCE OF ROUTE AFTER THE ONSET OF THE EVENT.
     Dates: start: 20061016, end: 20061016
  12. SALINE [Concomitant]
     Dosage: MAINTENANCE OF ROUTE; EVERY DAY
     Route: 041
     Dates: start: 20061016, end: 20061016
  13. DORMICUM [Concomitant]
     Indication: ANAESTHESIA
     Route: 042
     Dates: start: 20061016, end: 20061016

REACTIONS (6)
  - ABDOMINAL DISTENSION [None]
  - BLOOD PRESSURE INCREASED [None]
  - CHEST DISCOMFORT [None]
  - FATIGUE [None]
  - HYPERVENTILATION [None]
  - INFUSION RELATED REACTION [None]
